FAERS Safety Report 4442953-1 (Version None)
Quarter: 2004Q3

REPORT INFORMATION
  Report Type: 
  Country: None (occurrence: None)
  Receive Date: 20040907
  Receipt Date: 20040907
  Transmission Date: 20050211
  Serious: No
  Sender: FDA-Public Use
  Company Number: None

PATIENT
  Age: 48 Year
  Sex: Male
  Weight: 70.3075 kg

DRUGS (1)
  1. MOBIC [Suspect]
     Dosage: 15MG  QD  ORAL
     Route: 048
     Dates: start: 20030101, end: 20040731

REACTIONS (1)
  - BLOOD PRESSURE INCREASED [None]
